FAERS Safety Report 4820783-6 (Version None)
Quarter: 2005Q4

REPORT INFORMATION
  Report Type: 
  Country: None (occurrence: None)
  Receive Date: 20051103
  Receipt Date: 20051103
  Transmission Date: 20060501
  Serious: Yes (Hospitalization)
  Sender: FDA-Public Use
  Company Number: None

PATIENT
  Sex: Male
  Weight: 16.3295 kg

DRUGS (1)
  1. CEFACLOR [Suspect]
     Indication: BACTERIAL INFECTION
     Dosage: 1 TSP    TID  PO
     Route: 048

REACTIONS (5)
  - BODY TEMPERATURE INCREASED [None]
  - DEHYDRATION [None]
  - LETHARGY [None]
  - NEUTROPENIA [None]
  - WEIGHT DECREASED [None]
